FAERS Safety Report 12111637 (Version 1)
Quarter: 2016Q1

REPORT INFORMATION
  Report Type: Spontaneous
  Country: US (occurrence: US)
  Receive Date: 20160224
  Receipt Date: 20160224
  Transmission Date: 20160526
  Serious: No
  Sender: FDA-Public Use
  Company Number: US-JAZZ-2015-US-020089

PATIENT
  Age: 57 Year
  Sex: Female

DRUGS (4)
  1. FENTANYL. [Suspect]
     Active Substance: FENTANYL
     Indication: SPINAL PAIN
  2. PRIALT [Suspect]
     Active Substance: ZICONOTIDE ACETATE
     Indication: SPINAL PAIN
  3. PRIALT [Suspect]
     Active Substance: ZICONOTIDE ACETATE
     Indication: SPINAL LAMINECTOMY
     Dosage: 0.05 ?G, QH
     Route: 037
  4. FENTANYL. [Suspect]
     Active Substance: FENTANYL
     Indication: SPINAL LAMINECTOMY
     Dosage: 3.125 ?G, QH
     Route: 037

REACTIONS (5)
  - Muscular weakness [Unknown]
  - Gait disturbance [Unknown]
  - Malaise [Unknown]
  - Nausea [Unknown]
  - Drug administration error [Recovered/Resolved]

NARRATIVE: CASE EVENT DATE: 20151117
